FAERS Safety Report 24752102 (Version 1)
Quarter: 2024Q4

REPORT INFORMATION
  Report Type: Other
  Country: IR (occurrence: IR)
  Receive Date: 20241219
  Receipt Date: 20241219
  Transmission Date: 20250115
  Serious: Yes (Death, Hospitalization)
  Sender: BIONPHARMA INC.
  Company Number: IR-Bion-014535

PATIENT
  Age: 4 Year
  Sex: Male

DRUGS (3)
  1. DICLOFENAC POTASSIUM [Suspect]
     Active Substance: DICLOFENAC POTASSIUM
     Indication: Varicella
     Dosage: DICLOFENAC SUPPOSITORIES
  2. ACETAMINOPHEN [Concomitant]
     Active Substance: ACETAMINOPHEN
     Indication: Varicella
     Dosage: PARACETAMOL  SUPPOSITORIES
  3. ACYCLOVIR [Concomitant]
     Active Substance: ACYCLOVIR
     Indication: Varicella
     Dosage: ACICLOVIR SUPPOSITORIES

REACTIONS (1)
  - Drug ineffective for unapproved indication [Fatal]
